FAERS Safety Report 24734223 (Version 1)
Quarter: 2024Q4

REPORT INFORMATION
  Report Type: Spontaneous
  Country: DE (occurrence: DE)
  Receive Date: 20241214
  Receipt Date: 20241214
  Transmission Date: 20250114
  Serious: No
  Sender: ALKEM
  Company Number: DE-ALKEM LABORATORIES LIMITED-DE-ALKEM-2024-09582

PATIENT
  Age: 35 Year
  Sex: Female

DRUGS (14)
  1. MYCOPHENOLATE MOFETIL [Suspect]
     Active Substance: MYCOPHENOLATE MOFETIL
     Indication: Prophylaxis against transplant rejection
     Dosage: 1440 MILLIGRAM, QD
     Route: 065
  2. TACROLIMUS [Suspect]
     Active Substance: TACROLIMUS
     Indication: Prophylaxis against transplant rejection
     Dosage: 0.17 MILLIGRAM/KILOGRAM, QD
     Route: 065
  3. METHYLPREDNISOLONE [Suspect]
     Active Substance: METHYLPREDNISOLONE
     Indication: Prophylaxis against transplant rejection
     Dosage: 500 MILLIGRAM, (DAY 1)
     Route: 065
  4. METHYLPREDNISOLONE [Suspect]
     Active Substance: METHYLPREDNISOLONE
     Dosage: 250 MILLIGRAM, (DAY 2)
     Route: 065
  5. METHYLPREDNISOLONE [Suspect]
     Active Substance: METHYLPREDNISOLONE
     Dosage: 5 MILLIGRAM
     Route: 065
  6. METHYLPREDNISOLONE [Suspect]
     Active Substance: METHYLPREDNISOLONE
     Dosage: 125 MILLIGRAM, (DAY 3)
     Route: 065
  7. METHYLPREDNISOLONE [Suspect]
     Active Substance: METHYLPREDNISOLONE
     Dosage: 80 MILLIGRAM, (DAY 3-7)
     Route: 065
  8. METHYLPREDNISOLONE [Suspect]
     Active Substance: METHYLPREDNISOLONE
     Dosage: 4 MILLIGRAM, (DOSE TAPERED), (DAY 42)
     Route: 065
  9. EQUINE THYMOCYTE IMMUNE GLOBULIN [Suspect]
     Active Substance: EQUINE THYMOCYTE IMMUNE GLOBULIN
     Indication: Prophylaxis against transplant rejection
     Dosage: 15 MILLIGRAM/KILOGRAM
     Route: 065
  10. DARATUMUMAB [Suspect]
     Active Substance: DARATUMUMAB
     Indication: Prophylaxis against transplant rejection
     Dosage: 1800 MILLIGRAM
     Route: 065
  11. IMLIFIDASE [Suspect]
     Active Substance: IMLIFIDASE
     Indication: Prophylaxis against transplant rejection
     Dosage: 20 MILLIGRAM
     Route: 065
  12. RITUXIMAB [Suspect]
     Active Substance: RITUXIMAB
     Indication: Prophylaxis against transplant rejection
     Dosage: 1 GRAM
     Route: 042
  13. HEPARIN [Concomitant]
     Active Substance: HEPARIN SODIUM
     Indication: Product used for unknown indication
     Dosage: UNK
     Route: 065
  14. PHENPROCOUMON [Concomitant]
     Active Substance: PHENPROCOUMON
     Indication: Antiphospholipid syndrome
     Dosage: UNK
     Route: 065

REACTIONS (1)
  - COVID-19 [Recovered/Resolved]
